FAERS Safety Report 19668836 (Version 1)
Quarter: 2021Q3

REPORT INFORMATION
  Report Type: Spontaneous
  Country: GB (occurrence: GB)
  Receive Date: 20210806
  Receipt Date: 20210806
  Transmission Date: 20211014
  Serious: Yes (Hospitalization)
  Sender: FDA-Public Use
  Company Number: GB-ASTRAZENECA-2021A659449

PATIENT
  Age: 71 Year
  Sex: Male
  Weight: 94.5 kg

DRUGS (2)
  1. ACALABRUTINIB. [Suspect]
     Active Substance: ACALABRUTINIB
     Indication: CHRONIC LYMPHOCYTIC LEUKAEMIA
     Dosage: 100MG BD
     Route: 048
     Dates: start: 20210524, end: 20210605
  2. ACALABRUTINIB. [Suspect]
     Active Substance: ACALABRUTINIB
     Indication: CHRONIC LYMPHOCYTIC LEUKAEMIA
     Dosage: 100MG OD
     Route: 048

REACTIONS (1)
  - Tumour lysis syndrome [Recovered/Resolved]

NARRATIVE: CASE EVENT DATE: 20210605
